FAERS Safety Report 25126887 (Version 1)
Quarter: 2025Q1

REPORT INFORMATION
  Report Type: Spontaneous
  Country: US (occurrence: US)
  Receive Date: 20250327
  Receipt Date: 20250327
  Transmission Date: 20250409
  Serious: No
  Sender: GRIFOLS
  Company Number: US-IGSA-BIG0033761

PATIENT

DRUGS (3)
  1. GAMUNEX-C [Suspect]
     Active Substance: HUMAN IMMUNOGLOBULIN G
     Indication: Multifocal motor neuropathy
     Dosage: 50 GRAM, Q.2WK.
     Route: 042
  2. GAMUNEX-C [Suspect]
     Active Substance: HUMAN IMMUNOGLOBULIN G
     Indication: Off label use
     Dosage: 50 GRAM, Q.2WK.
     Route: 042
  3. GAMUNEX-C [Suspect]
     Active Substance: HUMAN IMMUNOGLOBULIN G
     Dosage: 50 GRAM, Q.2WK.
     Route: 042
     Dates: start: 2020

REACTIONS (8)
  - Pain in extremity [Unknown]
  - Back pain [Unknown]
  - Chest pain [Unknown]
  - Eructation [Unknown]
  - Nausea [Recovered/Resolved]
  - Pruritus [Unknown]
  - Urticaria [Unknown]
  - Lip swelling [Unknown]

NARRATIVE: CASE EVENT DATE: 20250311
